FAERS Safety Report 5318666-0 (Version None)
Quarter: 2007Q2

REPORT INFORMATION
  Report Type: 
  Country: None (occurrence: None)
  Receive Date: 20070508
  Receipt Date: 20070502
  Transmission Date: 20071010
  Serious: Yes (Life-Threatening, Hospitalization, Other)
  Sender: FDA-Public Use
  Company Number: PHRM2007FR01396

PATIENT
  Age: 46 Year
  Sex: Female
  Weight: 68 kg

DRUGS (5)
  1. CLOZAPINE [Suspect]
     Dosage: 200 MG/DAY
     Route: 048
     Dates: start: 20060823, end: 20061221
  2. SEGLOR [Suspect]
     Dosage: 1 DF, BID
     Route: 048
  3. TAHOR [Suspect]
     Dosage: 10 MG, QD
     Route: 048
  4. AVLOCARDYL [Concomitant]
     Dosage: 160 MG, QD
     Route: 048
  5. GLUCOPHAGE [Concomitant]
     Dosage: 850 MG, TID
     Route: 048

REACTIONS (39)
  - ABDOMINAL PAIN LOWER [None]
  - ACQUIRED CARDIAC SEPTAL DEFECT [None]
  - ACUTE PULMONARY OEDEMA [None]
  - ALVEOLITIS [None]
  - ANXIETY [None]
  - BLOOD GASES ABNORMAL [None]
  - BLOOD LACTIC ACID INCREASED [None]
  - BLOOD PRESSURE IMMEASURABLE [None]
  - BRONCHIAL OBSTRUCTION [None]
  - CAPILLARY NAIL REFILL TEST [None]
  - CARDIAC OUTPUT DECREASED [None]
  - CARDIOGENIC SHOCK [None]
  - CATHETER RELATED INFECTION [None]
  - CYST [None]
  - DYSPHAGIA [None]
  - EJECTION FRACTION DECREASED [None]
  - ELECTROCARDIOGRAM ST SEGMENT ELEVATION [None]
  - FLUID REPLACEMENT [None]
  - GLASGOW COMA SCALE ABNORMAL [None]
  - HAEMODYNAMIC INSTABILITY [None]
  - HEART RATE INCREASED [None]
  - HYPOTENSION [None]
  - LARYNGEAL OBSTRUCTION [None]
  - LEFT VENTRICULAR END-DIASTOLIC PRESSURE INCREASED [None]
  - LIFE SUPPORT [None]
  - LUNG DISORDER [None]
  - OLIGURIA [None]
  - PCO2 DECREASED [None]
  - PRODUCTIVE COUGH [None]
  - PSITTACOSIS [None]
  - PYREXIA [None]
  - RADIAL PULSE ABNORMAL [None]
  - RALES [None]
  - RESPIRATORY RATE INCREASED [None]
  - SPEECH DISORDER [None]
  - STAPHYLOCOCCAL INFECTION [None]
  - TACHYCARDIA [None]
  - TACHYPNOEA [None]
  - TROPONIN INCREASED [None]
